FAERS Safety Report 9251670 (Version 1)
Quarter: 2013Q1

REPORT INFORMATION
  Report Type: Spontaneous
  Country: US (occurrence: None)
  Receive Date: 20130305
  Receipt Date: 20130305
  Transmission Date: 20140127
  Serious: Yes (Other)
  Sender: FDA-Public Use
  Company Number: 163-21880-12082228

PATIENT
  Age: 77 Year
  Sex: Male
  Weight: 100.25 kg

DRUGS (14)
  1. REVLIMID [Suspect]
     Indication: PLASMA CELL MYELOMA
     Dosage: 06/28/2012 - UNKNOWN, CAPSULE, 5 MG, 28 IN 28 D, PO
  2. ACTOS (PIOGLITAZONE) [Concomitant]
  3. ARANESP (DARBEPOETIN ALFA) [Concomitant]
  4. CELEBREX (CELECOXIB) [Concomitant]
  5. ESCITALOPRAM (ESCITALOPRAM) [Concomitant]
  6. EXCELON (RIVASTIGMINE TARTRATE) [Concomitant]
  7. LISINOPRIL (LISINOPRIL) [Concomitant]
  8. METOPROLOL (METOPROLOL) [Concomitant]
  9. VITAMINS [Concomitant]
  10. NAMENDA (MEMANTINE HYDROCHLORIDE) [Concomitant]
  11. SEROQUEL (QUETIAPINE FUMARATE) [Concomitant]
  12. SIMVASTATIN (SIMVASTATIN) [Concomitant]
  13. SUCRALFATE (SUCRALFATE) [Concomitant]
  14. VOLTAREN (DICLOFENAC SODIUM) [Concomitant]

REACTIONS (1)
  - Fluid retention [None]
